FAERS Safety Report 6140851-9 (Version None)
Quarter: 2009Q2

REPORT INFORMATION
  Report Type: 
  Country: None (occurrence: None)
  Receive Date: 20090401
  Receipt Date: 20090401
  Transmission Date: 20091009
  Serious: Yes (Hospitalization)
  Sender: FDA-Public Use
  Company Number: None

PATIENT
  Sex: Female
  Weight: 99.8 kg

DRUGS (3)
  1. METHOTREXATE [Suspect]
     Dosage: 14000 MG
  2. RITUXIMAB (MOAB C2B8 ANTI CD20, CHIMERIC) [Suspect]
     Dosage: 785 MG
  3. TEMOZOLOMIDE [Suspect]
     Dosage: 1000 MG

REACTIONS (4)
  - CULTURE WOUND POSITIVE [None]
  - EXTRADURAL ABSCESS [None]
  - HAEMOGLOBIN DECREASED [None]
  - PROPIONIBACTERIUM INFECTION [None]
